FAERS Safety Report 11150368 (Version 1)
Quarter: 2015Q2

REPORT INFORMATION
  Report Type: Other
  Country: GB (occurrence: GB)
  Receive Date: 20150531
  Receipt Date: 20150531
  Transmission Date: 20150821
  Serious: Yes (Hospitalization)
  Sender: FDA-Public Use
  Company Number: GB-MYLANLABS-2015M1016631

PATIENT

DRUGS (5)
  1. CISPLATIN. [Suspect]
     Active Substance: CISPLATIN
     Indication: GASTRIC CANCER
     Dosage: UNK (DATE OF MOST RECENT DOSE 28/MAR/2013, DOSE: 310 MG)
     Route: 042
     Dates: start: 20130213
  2. EPIRUBICIN [Suspect]
     Active Substance: EPIRUBICIN
     Indication: GASTRIC CANCER
     Dosage: UNK (DATE OF MOST RECENT DOSE 28/MAR/2013, DOSE: 70 MG)
     Route: 042
     Dates: start: 20130213
  3. AVASTIN [Suspect]
     Active Substance: BEVACIZUMAB
     Indication: GASTRIC CANCER
     Dosage: UNK (DATE OF MOST RECENT DOSE 28/MAR/2013, DOSE: 7.5 MG)
     Route: 042
     Dates: start: 20130213
  4. CARBOPLATIN. [Suspect]
     Active Substance: CARBOPLATIN
     Indication: GASTRIC CANCER
     Dosage: UNK (DATE OF MOST RECENT DOSE 28/MAR/2013, DOSE: 310 MG)
     Route: 042
     Dates: start: 20130213
  5. XELODA [Suspect]
     Active Substance: CAPECITABINE
     Indication: GASTRIC CANCER
     Dosage: UNK (DATE OF MOST RECENT DOSE 28/MAR/2013, DOSE: 27300 MG)
     Route: 048
     Dates: start: 20130213

REACTIONS (1)
  - Weight decreased [Not Recovered/Not Resolved]

NARRATIVE: CASE EVENT DATE: 20130408
